FAERS Safety Report 9012107 (Version 3)
Quarter: 2013Q1

REPORT INFORMATION
  Report Type: Spontaneous
  Country: US (occurrence: None)
  Receive Date: 20121228
  Receipt Date: 20130125
  Transmission Date: 20140127
  Serious: Yes (Other)
  Sender: FDA-Public Use
  Company Number: 2012P1067811

PATIENT
  Age: 50 Year
  Sex: Female

DRUGS (2)
  1. INFUMORPH [Suspect]
     Indication: PAIN
  2. INFUMORPH [Suspect]
     Indication: PAIN

REACTIONS (7)
  - Pain [None]
  - Device malfunction [None]
  - Cold sweat [None]
  - Cellulitis [None]
  - Oedema peripheral [None]
  - Muscle spasticity [None]
  - Neuropathy peripheral [None]
